FAERS Safety Report 8969365 (Version 1)
Quarter: 2012Q4

REPORT INFORMATION
  Report Type: 
  Country: US (occurrence: US)
  Receive Date: 20121218
  Receipt Date: 20121218
  Transmission Date: 20130627
  Serious: No
  Sender: FDA-Public Use
  Company Number: US-BRISTOL-MYERS SQUIBB COMPANY-16290066

PATIENT
  Sex: Female

DRUGS (1)
  1. ABILIFY [Suspect]
     Dosage: Duratn of therapy:1.5-2 wks
Dose:initially took 1/2 tablet, then ? tablet

REACTIONS (1)
  - Hyperglycaemia [Not Recovered/Not Resolved]
